FAERS Safety Report 18931923 (Version 2)
Quarter: 2021Q1

REPORT INFORMATION
  Report Type: Spontaneous
  Country: TR (occurrence: TR)
  Receive Date: 20210224
  Receipt Date: 20210315
  Transmission Date: 20210420
  Serious: Yes (Other)
  Sender: FDA-Public Use
  Company Number: TR-SUN PHARMACEUTICAL INDUSTRIES LTD-2021RR-282477

PATIENT
  Age: 68 Year
  Sex: Male

DRUGS (5)
  1. PREGABALIN. [Suspect]
     Active Substance: PREGABALIN
     Dosage: 300 MILLIGRAM, DAILY(2X150 MG)
     Route: 065
  2. PREGABALIN. [Suspect]
     Active Substance: PREGABALIN
     Indication: NEURALGIA
     Dosage: 75 MILLIGRAM, ONLY AT NIGHTS
     Route: 065
  3. PREGABALIN. [Suspect]
     Active Substance: PREGABALIN
     Dosage: 150 MILLIGRAM, BID
     Route: 065
  4. PREGABALIN. [Suspect]
     Active Substance: PREGABALIN
     Dosage: 300 MILLIGRAM, DAILY
  5. PREGABALIN. [Suspect]
     Active Substance: PREGABALIN
     Dosage: 450 MILLIGRAM, DAILY
     Route: 065

REACTIONS (1)
  - Deafness [Recovered/Resolved]
